FAERS Safety Report 5480624-3 (Version None)
Quarter: 2007Q4

REPORT INFORMATION
  Report Type: 
  Country: None (occurrence: None)
  Receive Date: 20071004
  Receipt Date: 20071004
  Transmission Date: 20080405
  Serious: Yes (Hospitalization)
  Sender: FDA-Public Use
  Company Number: None

PATIENT
  Sex: Male
  Weight: 110.2 kg

DRUGS (2)
  1. CARBOPLATIN [Suspect]
     Dosage: 470 MG
  2. ALIMTA [Suspect]
     Dosage: 1075 MG

REACTIONS (3)
  - MUCOSAL INFLAMMATION [None]
  - OESOPHAGITIS [None]
  - SYNCOPE [None]
